FAERS Safety Report 10933949 (Version 1)
Quarter: 2015Q1

REPORT INFORMATION
  Report Type: Spontaneous
  Country: US (occurrence: US)
  Receive Date: 20150320
  Receipt Date: 20150320
  Transmission Date: 20150721
  Serious: Yes (Hospitalization, Other)
  Sender: FDA-Public Use
  Company Number: US-TARO-2015TAR00223

PATIENT
  Age: 88 Year
  Sex: Male
  Weight: 99.77 kg

DRUGS (4)
  1. WARFARIN SODIUM TABLETS USP 5MG [Suspect]
     Active Substance: WARFARIN SODIUM
     Indication: CEREBROVASCULAR ACCIDENT
     Dosage: UNK UNK, 1X/DAY
     Route: 048
     Dates: start: 2005
  2. ENALAPRIL [Concomitant]
     Active Substance: ENALAPRIL
  3. TOPROL XL [Concomitant]
     Active Substance: METOPROLOL SUCCINATE
  4. FUROSEMIDE. [Concomitant]
     Active Substance: FUROSEMIDE

REACTIONS (3)
  - International normalised ratio decreased [Recovered/Resolved]
  - Drug effect incomplete [Recovered/Resolved]
  - Transient ischaemic attack [Recovered/Resolved]

NARRATIVE: CASE EVENT DATE: 201502
